FAERS Safety Report 14840297 (Version 2)
Quarter: 2019Q1

REPORT INFORMATION
  Report Type: Report from Study
  Country: US (occurrence: US)
  Receive Date: 20180503
  Receipt Date: 20190329
  Transmission Date: 20190417
  Serious: Yes (Other)
  Sender: FDA-Public Use
  Company Number: US-ROCHE-2115102

PATIENT
  Age: 60 Year
  Sex: Female

DRUGS (1)
  1. OCREVUS [Suspect]
     Active Substance: OCRELIZUMAB
     Indication: MULTIPLE SCLEROSIS
     Dosage: 300/10ML; OTHER FREQUENCY ONGOING:UNKNOWN
     Route: 042
     Dates: start: 2017

REACTIONS (3)
  - Multiple sclerosis [Unknown]
  - Upper respiratory tract infection [Unknown]
  - Bronchitis [Unknown]

NARRATIVE: CASE EVENT DATE: 20190320
